FAERS Safety Report 8771799 (Version 4)
Quarter: 2013Q4

REPORT INFORMATION
  Report Type: Report from Study
  Country: CA (occurrence: CA)
  Receive Date: 20120906
  Receipt Date: 20131226
  Transmission Date: 20140711
  Serious: Yes (Hospitalization, Other)
  Sender: FDA-Public Use
  Company Number: CA-ROCHE-1113441

PATIENT
  Age: 52 Year
  Sex: Male
  Weight: 68 kg

DRUGS (16)
  1. ACTEMRA [Suspect]
     Indication: RHEUMATOID ARTHRITIS
     Route: 042
     Dates: start: 20110811
  2. ACTEMRA [Suspect]
     Route: 042
     Dates: start: 20120510
  3. ACTEMRA [Suspect]
     Route: 042
     Dates: start: 20120528
  4. ACTEMRA [Suspect]
     Route: 042
     Dates: start: 20120629
  5. ACTEMRA [Suspect]
     Route: 042
     Dates: start: 20130712
  6. METHOTREXATE [Concomitant]
  7. ALENDRONATE SODIUM [Concomitant]
  8. VITAMIN D2 [Concomitant]
  9. CELEBREX [Concomitant]
  10. DOCUSATE SODIUM [Concomitant]
  11. SENOKOT [Concomitant]
  12. FERROUS SULPHATE [Concomitant]
  13. FOLIC ACID [Concomitant]
  14. OXYCONTIN [Concomitant]
  15. AZITHROMYCIN [Concomitant]
  16. PREDNISONE [Concomitant]

REACTIONS (8)
  - Hernia [Not Recovered/Not Resolved]
  - Weight increased [Not Recovered/Not Resolved]
  - Rib fracture [Unknown]
  - Urticaria [Unknown]
  - Dyspnoea [Unknown]
  - Pain [Unknown]
  - Local swelling [Unknown]
  - Joint swelling [Unknown]
